FAERS Safety Report 19248312 (Version 1)
Quarter: 2021Q2

REPORT INFORMATION
  Report Type: Spontaneous
  Country: US (occurrence: US)
  Receive Date: 20210512
  Receipt Date: 20210512
  Transmission Date: 20210717
  Serious: No
  Sender: FDA-Public Use
  Company Number: US-BAYER-2021-137894

PATIENT
  Age: 29 Year
  Sex: Female

DRUGS (1)
  1. MIRENA [Suspect]
     Active Substance: LEVONORGESTREL
     Indication: CONTRACEPTION
     Dosage: 20?G PER DAY CONTINOUSLY
     Route: 015
     Dates: start: 201902, end: 202104

REACTIONS (2)
  - Device expulsion [Recovered/Resolved]
  - Pelvic pain [None]

NARRATIVE: CASE EVENT DATE: 202104
